FAERS Safety Report 5514977-4 (Version None)
Quarter: 2007Q4

REPORT INFORMATION
  Report Type: 
  Country: None (occurrence: None)
  Receive Date: 20071113
  Receipt Date: 20061030
  Transmission Date: 20080405
  Serious: No
  Sender: FDA-Public Use
  Company Number: A0625382A

PATIENT
  Sex: Female

DRUGS (6)
  1. COREG [Suspect]
     Route: 048
  2. LASIX [Concomitant]
  3. PLAVIX [Concomitant]
  4. IMDUR [Concomitant]
  5. ALTACE [Concomitant]
  6. DIOVAN [Concomitant]

REACTIONS (1)
  - ALOPECIA [None]
